FAERS Safety Report 11361917 (Version 2)
Quarter: 2015Q3

REPORT INFORMATION
  Report Type: Spontaneous
  Country: US (occurrence: US)
  Receive Date: 20150810
  Receipt Date: 20150916
  Transmission Date: 20151125
  Serious: Yes (Hospitalization)
  Sender: FDA-Public Use
  Company Number: GXBR2015US001806

PATIENT
  Sex: Male
  Weight: 84 kg

DRUGS (4)
  1. ZIPRASIDONE HCL [Suspect]
     Active Substance: ZIPRASIDONE HYDROCHLORIDE
     Indication: BIPOLAR DISORDER
     Dosage: 160 MG, BID
     Route: 048
     Dates: start: 201309, end: 2015
  2. SEROQUEL [Suspect]
     Active Substance: QUETIAPINE FUMARATE
     Indication: INSOMNIA
     Dosage: 50 MG, QHS
     Route: 065
  3. ZIPRASIDONE HCL [Suspect]
     Active Substance: ZIPRASIDONE HYDROCHLORIDE
     Dosage: 80 MG, BID
     Route: 048
  4. ZIPRASIDONE HCL [Suspect]
     Active Substance: ZIPRASIDONE HYDROCHLORIDE
     Dosage: 80MG IN THE MORNING AND 160MG AT NIGHT
     Route: 048

REACTIONS (21)
  - Muscle disorder [Unknown]
  - Hallucination [Unknown]
  - Speech disorder [Unknown]
  - Delirium [Unknown]
  - Agitation [Unknown]
  - Constipation [Unknown]
  - Insomnia [Not Recovered/Not Resolved]
  - Communication disorder [Unknown]
  - Pyrexia [Unknown]
  - Confusional state [Unknown]
  - Chest pain [Not Recovered/Not Resolved]
  - Back pain [Not Recovered/Not Resolved]
  - Fear [Unknown]
  - Bipolar disorder [Unknown]
  - Aphasia [Unknown]
  - Night sweats [Unknown]
  - Drug ineffective [Unknown]
  - Cold sweat [Unknown]
  - Erectile dysfunction [Recovering/Resolving]
  - Hallucinations, mixed [Unknown]
  - Memory impairment [Unknown]
